FAERS Safety Report 24422742 (Version 1)
Quarter: 2024Q4

REPORT INFORMATION
  Report Type: Spontaneous
  Country: BR (occurrence: BR)
  Receive Date: 20241010
  Receipt Date: 20241010
  Transmission Date: 20250114
  Serious: Yes (Other)
  Sender: ROCHE
  Company Number: BR-ROCHE-10000097348

PATIENT
  Age: 80 Year
  Sex: Female

DRUGS (1)
  1. ATEZOLIZUMAB [Suspect]
     Active Substance: ATEZOLIZUMAB
     Indication: Lung neoplasm malignant
     Route: 065

REACTIONS (4)
  - Central nervous system lesion [Unknown]
  - Mediastinum neoplasm [Unknown]
  - Lung neoplasm malignant [Unknown]
  - Pleural effusion [Unknown]
